FAERS Safety Report 7492813-7 (Version None)
Quarter: 2011Q2

REPORT INFORMATION
  Report Type: 
  Country: None (occurrence: None)
  Receive Date: 20110512
  Receipt Date: 20110504
  Transmission Date: 20111010
  Serious: Yes (Hospitalization, Other)
  Sender: FDA-Public Use
  Company Number: 2009SP020337

PATIENT
  Age: 27 Year
  Sex: Female
  Weight: 86.1834 kg

DRUGS (1)
  1. NUVARING [Suspect]
     Indication: CONTRACEPTION
     Dates: end: 20060701

REACTIONS (14)
  - HEADACHE [None]
  - HYPOKALAEMIA [None]
  - PREGNANCY [None]
  - PULMONARY INFARCTION [None]
  - PLEURAL EFFUSION [None]
  - PAIN [None]
  - PLACENTAL INFARCTION [None]
  - ABDOMINAL PAIN [None]
  - BRADYCARDIA [None]
  - PULMONARY EMBOLISM [None]
  - MIGRAINE [None]
  - PRESYNCOPE [None]
  - DRUG EXPOSURE BEFORE PREGNANCY [None]
  - INTRA-UTERINE DEATH [None]
